FAERS Safety Report 5508248-X (Version None)
Quarter: 2007Q4

REPORT INFORMATION
  Report Type: 
  Country: None (occurrence: None)
  Receive Date: 20071106
  Receipt Date: 20071025
  Transmission Date: 20080405
  Serious: Yes (Other)
  Sender: FDA-Public Use
  Company Number: JP-PFIZER INC-2007091767

PATIENT
  Age: 45 Year
  Sex: Female

DRUGS (5)
  1. PHENYTOIN SUSPENSION [Suspect]
     Indication: CONVULSION
     Dosage: DAILY DOSE:200MG
     Route: 048
  2. TACROLIMUS [Interacting]
     Indication: IMMUNOSUPPRESSION
  3. MYCOPHENOLATE MOFETIL [Concomitant]
     Indication: IMMUNOSUPPRESSION
  4. PREDNISONE [Concomitant]
     Indication: IMMUNOSUPPRESSION
  5. CYCLOSPORINE [Concomitant]

REACTIONS (1)
  - DRUG INTERACTION [None]
